FAERS Safety Report 5835389-X (Version None)
Quarter: 2008Q3

REPORT INFORMATION
  Report Type: 
  Country: None (occurrence: None)
  Receive Date: 20080806
  Receipt Date: 20080731
  Transmission Date: 20090109
  Serious: Yes (Other)
  Sender: FDA-Public Use
  Company Number: GB-MERCK-0808GBR00004

PATIENT
  Age: 79 Year
  Sex: Female

DRUGS (6)
  1. FOSAMAX [Suspect]
     Indication: OSTEOPOROSIS PROPHYLAXIS
     Route: 048
  2. HALOPERIDOL [Concomitant]
     Route: 065
  3. CALCIUM CARBONATE AND CHOLECALCIFEROL [Concomitant]
     Route: 065
  4. ESOMEPRAZOLE MAGNESIUM [Concomitant]
     Route: 065
  5. CITALOPRAM HYDROBROMIDE [Concomitant]
     Route: 065
  6. PERINDOPRIL ARGININE [Concomitant]
     Route: 065

REACTIONS (1)
  - OSTEONECROSIS [None]
